FAERS Safety Report 13522225 (Version 1)
Quarter: 2017Q2

REPORT INFORMATION
  Report Type: Spontaneous
  Country: RS (occurrence: RS)
  Receive Date: 20170508
  Receipt Date: 20170508
  Transmission Date: 20170830
  Serious: Yes (Hospitalization, Other)
  Sender: FDA-Public Use
  Company Number: RS-GLAXOSMITHKLINE-RS2017GSK033384

PATIENT
  Sex: Female

DRUGS (2)
  1. LAMICTAL [Suspect]
     Active Substance: LAMOTRIGINE
     Indication: EPILEPSY
     Dosage: UNK
     Route: 048
     Dates: start: 201610
  2. VITAMIN D3 [Concomitant]
     Active Substance: CHOLECALCIFEROL

REACTIONS (11)
  - Seizure [Unknown]
  - Somnolence [Unknown]
  - Rash [Recovered/Resolved]
  - Generalised tonic-clonic seizure [Unknown]
  - Loss of consciousness [Unknown]
  - Skin disorder [Unknown]
  - Disorientation [Unknown]
  - Ill-defined disorder [Unknown]
  - Urinary incontinence [Unknown]
  - Anal incontinence [Unknown]
  - Amnesia [Unknown]

NARRATIVE: CASE EVENT DATE: 201611
